FAERS Safety Report 9193823 (Version 2)
Quarter: 2013Q2

REPORT INFORMATION
  Report Type: Spontaneous
  Country: US (occurrence: US)
  Receive Date: 20130327
  Receipt Date: 20130508
  Transmission Date: 20140414
  Serious: No
  Sender: FDA-Public Use
  Company Number: US-ASTRAZENECA-2013SE15989

PATIENT
  Age: 60 Year
  Sex: Female
  Weight: 62.6 kg

DRUGS (3)
  1. PULMICORT FLEXHALER [Suspect]
     Indication: EMPHYSEMA
     Dosage: 180 MCG ONE PUFF TWO TIMES A DAY
     Route: 055
     Dates: start: 20130205
  2. PULMICORT FLEXHALER [Suspect]
     Indication: EMPHYSEMA
     Dosage: 180 MCG ONE PUFF DAILY
     Route: 055
  3. VENTOLIN [Concomitant]
     Indication: INHALATION THERAPY
     Dosage: PRN
     Route: 055

REACTIONS (4)
  - Tremor [Unknown]
  - Off label use [Unknown]
  - Off label use [Unknown]
  - Circumstance or information capable of leading to medication error [Unknown]
